FAERS Safety Report 7342464-X (Version None)
Quarter: 2011Q1

REPORT INFORMATION
  Report Type: 
  Country: None (occurrence: None)
  Receive Date: 20110310
  Receipt Date: 20110308
  Transmission Date: 20110831
  Serious: No
  Sender: FDA-Public Use
  Company Number: US-PFIZER INC-2011051264

PATIENT
  Sex: Male
  Weight: 83 kg

DRUGS (1)
  1. ADVIL [Suspect]
     Indication: MUSCULOSKELETAL PAIN
     Dosage: 200 MG, DAILY
     Route: 048
     Dates: end: 20110307

REACTIONS (2)
  - HYPERHIDROSIS [None]
  - BURNING SENSATION [None]
